FAERS Safety Report 5316996-X (Version None)
Quarter: 2007Q2

REPORT INFORMATION
  Report Type: 
  Country: None (occurrence: None)
  Receive Date: 20070504
  Receipt Date: 20070427
  Transmission Date: 20071010
  Serious: Yes (Other)
  Sender: FDA-Public Use
  Company Number: CN-PFIZER INC-2007034548

PATIENT
  Sex: Male

DRUGS (1)
  1. VIAGRA [Suspect]
     Dosage: DAILY DOSE:50MG
     Route: 048
     Dates: start: 20070425, end: 20070425

REACTIONS (4)
  - DRUG INEFFECTIVE [None]
  - EYELID OEDEMA [None]
  - NASAL OEDEMA [None]
  - THROAT IRRITATION [None]
